FAERS Safety Report 17439465 (Version 3)
Quarter: 2023Q4

REPORT INFORMATION
  Report Type: Spontaneous
  Country: DE (occurrence: DE)
  Receive Date: 20200220
  Receipt Date: 20231110
  Transmission Date: 20240110
  Serious: Yes (Other)
  Sender: FDA-Public Use
  Company Number: DE-002147023-NVSC2020DE032802

PATIENT
  Age: 58 Year
  Sex: Male

DRUGS (4)
  1. AGOMELATINE [Suspect]
     Active Substance: AGOMELATINE
     Indication: Depression
     Dosage: UNK
     Route: 065
  2. MIRTAZAPINE [Suspect]
     Active Substance: MIRTAZAPINE
     Indication: Depression
     Dosage: UNK
     Route: 065
  3. QUETIAPINE [Suspect]
     Active Substance: QUETIAPINE
     Indication: Depression
     Dosage: UNK
     Route: 065
  4. BUPROPION [Suspect]
     Active Substance: BUPROPION
     Indication: Depression
     Dosage: UNK
     Route: 065

REACTIONS (1)
  - Non-alcoholic steatohepatitis [Recovering/Resolving]
